FAERS Safety Report 22094548 (Version 2)
Quarter: 2023Q1

REPORT INFORMATION
  Report Type: Spontaneous
  Country: US (occurrence: US)
  Receive Date: 20230314
  Receipt Date: 20230324
  Transmission Date: 20230417
  Serious: No
  Sender: FDA-Public Use
  Company Number: US-TEVA-2023-US-2864275

PATIENT
  Age: 71 Year
  Sex: Female

DRUGS (1)
  1. LIDOCAINE [Suspect]
     Active Substance: LIDOCAINE
     Indication: Product used for unknown indication
     Route: 065

REACTIONS (7)
  - Hypersensitivity [Unknown]
  - Application site rash [Unknown]
  - Application site pain [Unknown]
  - Poor quality product administered [Unknown]
  - Device leakage [Unknown]
  - Product adhesion issue [Unknown]
  - Adverse reaction [Unknown]
